FAERS Safety Report 24991285 (Version 4)
Quarter: 2025Q2

REPORT INFORMATION
  Report Type: Spontaneous
  Country: AU (occurrence: AU)
  Receive Date: 20250220
  Receipt Date: 20250506
  Transmission Date: 20250717
  Serious: Yes (Other)
  Sender: BAYER HEALTHCARE PHARMACEUTICALS INC.
  Company Number: AU-BAYER-2025A018661

PATIENT

DRUGS (1)
  1. PRIMOVIST [Suspect]
     Active Substance: GADOXETATE DISODIUM

REACTIONS (5)
  - Product package associated injury [None]
  - Skin laceration [None]
  - Syringe issue [None]
  - Device issue [None]
  - Incorrect dose administered by device [None]
